FAERS Safety Report 18913848 (Version 1)
Quarter: 2021Q1

REPORT INFORMATION
  Report Type: Spontaneous
  Country: IT (occurrence: IT)
  Receive Date: 20210219
  Receipt Date: 20210219
  Transmission Date: 20210420
  Serious: Yes (Other)
  Sender: FDA-Public Use
  Company Number: IT-SUN PHARMACEUTICAL INDUSTRIES LTD-2021RR-281872

PATIENT
  Age: 65 Year
  Sex: Female
  Weight: 80 kg

DRUGS (2)
  1. TIROSINT 75 MICROGRAMMI/1 ML SOLUZIONE ORALE [Concomitant]
     Indication: HYPOTHYROIDISM
     Dosage: 75 MICROGRAM, UNK
     Route: 048
  2. ATORVASTATIN [Suspect]
     Active Substance: ATORVASTATIN
     Indication: TYPE IIA HYPERLIPIDAEMIA
     Dosage: 20 MILLIGRAM, DAILY
     Route: 048
     Dates: start: 20200601, end: 20201215

REACTIONS (1)
  - Fibromyalgia [Recovered/Resolved]

NARRATIVE: CASE EVENT DATE: 20201215
